FAERS Safety Report 9121948 (Version 2)
Quarter: 2013Q1

REPORT INFORMATION
  Report Type: Spontaneous
  Country: US (occurrence: US)
  Receive Date: 20130114
  Receipt Date: 20130307
  Transmission Date: 20140127
  Serious: No
  Sender: FDA-Public Use
  Company Number: US-TEVA-378988USA

PATIENT
  Sex: 0

DRUGS (1)
  1. PROAIR HFA [Suspect]

REACTIONS (1)
  - Drug effect decreased [Recovered/Resolved]
